FAERS Safety Report 4707612-6 (Version None)
Quarter: 2005Q3

REPORT INFORMATION
  Report Type: 
  Country: None (occurrence: None)
  Receive Date: 20050705
  Receipt Date: 20050627
  Transmission Date: 20060218
  Serious: Yes (Hospitalization)
  Sender: FDA-Public Use
  Company Number: A044-002-005608

PATIENT
  Age: 74 Year
  Sex: Female

DRUGS (12)
  1. ARICEPT [Suspect]
     Dosage: ORAL
     Route: 048
     Dates: end: 20050308
  2. FLICLAZIDE (GLICLAZIDE) [Suspect]
     Dosage: ORAL
     Route: 048
     Dates: end: 20050308
  3. NICARDIPINE HCL [Suspect]
     Dosage: 20 MG, 1 IN 1 D, ORAL
     Route: 048
     Dates: end: 20050308
  4. CYMEMAZINE (CYAMEMAZINE) [Concomitant]
     Dosage: 100 MG, 1 IN 1 D, ORAL
     Route: 048
     Dates: end: 20050308
  5. FENOFIBRATE [Suspect]
     Dosage: 200 MG, 1 IN 1 D, ORAL
     Route: 048
     Dates: end: 20050308
  6. CLOMIPRAMINE HCL [Suspect]
     Dosage: 25 MG, 1 IN 1 D, ORAL
     Route: 048
     Dates: end: 20050308
  7. RILMENIDINE (RILMENIDINE) [Concomitant]
     Dosage: ORAL
     Route: 048
     Dates: end: 20050308
  8. FOSINOPRIL SODIUM [Suspect]
     Dosage: ORAL
     Route: 048
     Dates: end: 20050308
  9. INDAPAMIDE [Suspect]
     Dosage: ORAL
     Route: 048
     Dates: end: 20050308
  10. METFORMIN HCL [Suspect]
     Dosage: ORAL
     Route: 048
     Dates: end: 20050308
  11. MEPROBAMATE-ACEPROMETAZINE (MEPRONIZINE) [Suspect]
     Dosage: ORAL
     Route: 048
     Dates: end: 20050308
  12. VALPROMIDE (VALPROMIDE) [Suspect]
     Dosage: ORAL
     Route: 048
     Dates: end: 20050308

REACTIONS (2)
  - HEPATITIS CHOLESTATIC [None]
  - JAUNDICE [None]
